FAERS Safety Report 8816968 (Version 1)
Quarter: 2012Q4

REPORT INFORMATION
  Report Type: Spontaneous
  Country: US (occurrence: None)
  Receive Date: 20121002
  Receipt Date: 20121002
  Transmission Date: 20130627
  Serious: Yes (Life-Threatening, Other)
  Sender: FDA-Public Use
  Company Number: None

PATIENT
  Age: 59 Year
  Sex: Female
  Weight: 54.43 kg

DRUGS (2)
  1. ZYPREXA [Suspect]
     Indication: PSYCHOSIS
     Route: 048
     Dates: start: 20120401, end: 20120928
  2. REMERON [Concomitant]

REACTIONS (4)
  - Starvation [None]
  - Coma [None]
  - Apparent death [None]
  - Treatment noncompliance [None]
